FAERS Safety Report 7648490-5 (Version None)
Quarter: 2011Q3

REPORT INFORMATION
  Report Type: 
  Country: None (occurrence: None)
  Receive Date: 20110801
  Receipt Date: 20110719
  Transmission Date: 20111222
  Serious: Yes (Other)
  Sender: FDA-Public Use
  Company Number: US-CELGENEUS-163-21880-11072152

PATIENT
  Sex: Male

DRUGS (1)
  1. REVLIMID [Suspect]
     Indication: MYCOSIS FUNGOIDES
     Dosage: 25 MILLIGRAM
     Route: 048
     Dates: start: 20110628, end: 20110712

REACTIONS (2)
  - HAEMORRHAGE [None]
  - ASTHENIA [None]
